FAERS Safety Report 21712169 (Version 1)
Quarter: 2022Q4

REPORT INFORMATION
  Report Type: Spontaneous
  Country: US (occurrence: US)
  Receive Date: 20221212
  Receipt Date: 20221212
  Transmission Date: 20230113
  Serious: No
  Sender: FDA-Public Use
  Company Number: US-MYLANLABS-2022M1135274

PATIENT
  Age: 97 Year
  Sex: Female

DRUGS (1)
  1. TRAVOPROST [Suspect]
     Active Substance: TRAVOPROST
     Indication: Glaucoma
     Dosage: UNK
     Route: 047

REACTIONS (2)
  - Product dose omission issue [Not Recovered/Not Resolved]
  - Device issue [Not Recovered/Not Resolved]

NARRATIVE: CASE EVENT DATE: 20221122
